FAERS Safety Report 5890411-X (Version None)
Quarter: 2008Q3

REPORT INFORMATION
  Report Type: 
  Country: None (occurrence: None)
  Receive Date: 20080921
  Receipt Date: 20080910
  Transmission Date: 20090109
  Serious: Yes (Hospitalization, Other)
  Sender: FDA-Public Use
  Company Number: US-JNJFOC-20080702795

PATIENT
  Sex: Female
  Weight: 81.65 kg

DRUGS (7)
  1. REMICADE [Suspect]
     Indication: COLITIS ULCERATIVE
     Route: 042
  2. TOPAMAX [Concomitant]
     Indication: HEADACHE
  3. IRON [Concomitant]
  4. LIALDA [Concomitant]
  5. ACIDOPHILLUS [Concomitant]
  6. LOVAZA [Concomitant]
  7. MVT [Concomitant]

REACTIONS (5)
  - FUNGAL INFECTION [None]
  - HERPES ZOSTER [None]
  - MIGRAINE [None]
  - PAIN IN JAW [None]
  - POLYARTHRITIS [None]
